FAERS Safety Report 6159002-X (Version None)
Quarter: 2009Q2

REPORT INFORMATION
  Report Type: 
  Country: None (occurrence: None)
  Receive Date: 20090417
  Receipt Date: 20090409
  Transmission Date: 20091009
  Serious: No
  Sender: FDA-Public Use
  Company Number: JP-JNJFOC-20090103958

PATIENT
  Sex: Male

DRUGS (8)
  1. TOPINA [Suspect]
     Route: 048
  2. TOPINA [Suspect]
     Route: 048
  3. TOPINA [Suspect]
     Route: 048
  4. TOPINA [Suspect]
     Indication: EPILEPSY
     Route: 048
  5. MEILAX [Suspect]
     Indication: EPILEPSY
     Route: 048
  6. PHENOBARBITAL TAB [Concomitant]
     Indication: EPILEPSY
     Route: 048
  7. RIVOTRIL [Concomitant]
     Indication: EPILEPSY
     Route: 048
  8. TRICLORYL [Concomitant]
     Indication: EPILEPSY
     Route: 048

REACTIONS (1)
  - HYPERAMMONAEMIA [None]
